FAERS Safety Report 24047125 (Version 5)
Quarter: 2024Q3

REPORT INFORMATION
  Report Type: Report from Study
  Country: CA (occurrence: CA)
  Receive Date: 20240703
  Receipt Date: 20240924
  Transmission Date: 20241017
  Serious: Yes (Other)
  Sender: CURRAX PHARMACEUTICALS
  Company Number: CA-BAUSCH-BL-2023-017018

PATIENT
  Age: 57 Year
  Sex: Female

DRUGS (21)
  1. CONTRAVE [Suspect]
     Active Substance: BUPROPION HYDROCHLORIDE\NALTREXONE HYDROCHLORIDE
     Indication: Weight control
     Dosage: 90/8 MG, 1 TABLET Q AM
     Route: 048
     Dates: start: 20231101, end: 20231107
  2. CONTRAVE [Suspect]
     Active Substance: BUPROPION HYDROCHLORIDE\NALTREXONE HYDROCHLORIDE
     Dosage: 90/8 MG, 1 TABLET Q AM, 1 TABLET Q PM
     Route: 048
     Dates: start: 20231108, end: 20231114
  3. CONTRAVE [Suspect]
     Active Substance: BUPROPION HYDROCHLORIDE\NALTREXONE HYDROCHLORIDE
     Dosage: 90/8 MG, 3 TABLETS/DAY
     Route: 048
     Dates: start: 20231115, end: 20231117
  4. CONTRAVE [Suspect]
     Active Substance: BUPROPION HYDROCHLORIDE\NALTREXONE HYDROCHLORIDE
     Dosage: 90/8 MG, 2 - 3 TABLETS/DAY
     Route: 048
     Dates: start: 20231118, end: 20231221
  5. CONTRAVE [Suspect]
     Active Substance: BUPROPION HYDROCHLORIDE\NALTREXONE HYDROCHLORIDE
     Dosage: 90/8 MG, 1 TAB Q AM, 2 TAB Q PM
     Route: 048
     Dates: start: 20231222, end: 20240114
  6. CONTRAVE [Suspect]
     Active Substance: BUPROPION HYDROCHLORIDE\NALTREXONE HYDROCHLORIDE
     Dosage: 90/8 MG, 2 TAB Q AM, 2 TAB Q PM
     Route: 048
     Dates: start: 20240115, end: 20240303
  7. CONTRAVE [Suspect]
     Active Substance: BUPROPION HYDROCHLORIDE\NALTREXONE HYDROCHLORIDE
     Dosage: 90/8 MG, 2 TAB Q AM, 1 TAB Q PM
     Route: 048
     Dates: start: 20240304, end: 2024
  8. CONTRAVE [Suspect]
     Active Substance: BUPROPION HYDROCHLORIDE\NALTREXONE HYDROCHLORIDE
     Dosage: 90/8 MG, 4 TABS/DAY
     Route: 048
     Dates: start: 2024, end: 20240613
  9. CONTRAVE [Suspect]
     Active Substance: BUPROPION HYDROCHLORIDE\NALTREXONE HYDROCHLORIDE
     Dosage: 90/8 MG, 1 TAB Q AM, 1 TAB Q PM (STOPPED)
     Route: 048
     Dates: start: 20240615, end: 20240625
  10. CONTRAVE [Suspect]
     Active Substance: BUPROPION HYDROCHLORIDE\NALTREXONE HYDROCHLORIDE
     Dosage: 90/8 MG, 1 TAB Q AM (SECOND ATTEMPT)
     Route: 048
     Dates: start: 20240704, end: 20240710
  11. CONTRAVE [Suspect]
     Active Substance: BUPROPION HYDROCHLORIDE\NALTREXONE HYDROCHLORIDE
     Dosage: 90/8 MG, 1 TAB Q AM, 1 TAB Q PM
     Route: 048
     Dates: start: 20240711, end: 20240717
  12. CONTRAVE [Suspect]
     Active Substance: BUPROPION HYDROCHLORIDE\NALTREXONE HYDROCHLORIDE
     Dosage: 90/8 MG, 2 TAB Q AM, 1 TAB Q PM
     Route: 048
     Dates: start: 20240718, end: 20240728
  13. CONTRAVE [Suspect]
     Active Substance: BUPROPION HYDROCHLORIDE\NALTREXONE HYDROCHLORIDE
     Dosage: 90/8 MG, 2 TAB Q AM, 2 TAB Q PM
     Route: 048
     Dates: start: 20240729, end: 20240730
  14. CONTRAVE [Suspect]
     Active Substance: BUPROPION HYDROCHLORIDE\NALTREXONE HYDROCHLORIDE
     Dosage: 90/8 MG, ONE PILL AT SUPPER (3 TAB/DAY) (1 IN 12 HR)
     Route: 048
     Dates: start: 20240731, end: 20240731
  15. CONTRAVE [Suspect]
     Active Substance: BUPROPION HYDROCHLORIDE\NALTREXONE HYDROCHLORIDE
     Dosage: 90/8 MG, 2 TABLETS/DAY
     Route: 048
     Dates: start: 20240801, end: 20240802
  16. CONTRAVE [Suspect]
     Active Substance: BUPROPION HYDROCHLORIDE\NALTREXONE HYDROCHLORIDE
     Dosage: 90/8 MG, 1 TAB/DAY
     Route: 048
     Dates: start: 20240805, end: 202408
  17. CONTRAVE [Suspect]
     Active Substance: BUPROPION HYDROCHLORIDE\NALTREXONE HYDROCHLORIDE
     Dosage: 90/8 MG, 2 TABS/DAY
     Route: 048
     Dates: start: 202408
  18. POLYETHYLENE GLYCOL 3350 [Suspect]
     Active Substance: POLYETHYLENE GLYCOL 3350
     Indication: Constipation
     Dosage: UNK
     Route: 065
  19. ESTROGENS [Concomitant]
     Active Substance: ESTROGENS
     Indication: Menopause
     Dosage: 1 IN 1 D
     Route: 048
  20. PANTOPRAZOLE [Concomitant]
     Active Substance: PANTOPRAZOLE
     Indication: Gastrooesophageal reflux disease
     Dosage: 1 IN 1 D
     Route: 048
  21. Reactine [Concomitant]
     Indication: Multiple allergies
     Dosage: 20 MG,1 IN 1 D
     Route: 048

REACTIONS (20)
  - Cholelithiasis [Unknown]
  - Weight increased [Recovered/Resolved]
  - Breath odour [Not Recovered/Not Resolved]
  - Pain in extremity [Not Recovered/Not Resolved]
  - Sleep disorder due to general medical condition, insomnia type [Unknown]
  - Poor quality sleep [Recovered/Resolved]
  - Stress [Recovering/Resolving]
  - Diarrhoea [Recovered/Resolved]
  - Dizziness [Recovered/Resolved]
  - Dysgeusia [Not Recovered/Not Resolved]
  - Constipation [Not Recovered/Not Resolved]
  - Nausea [Not Recovered/Not Resolved]
  - Headache [Not Recovered/Not Resolved]
  - Blood pressure increased [Unknown]
  - Patient dissatisfaction with treatment [Unknown]
  - Intentional underdose [Unknown]
  - Product dose omission issue [Unknown]
  - Product use issue [Unknown]
  - Drug titration error [Unknown]
  - Accidental underdose [Unknown]

NARRATIVE: CASE EVENT DATE: 20231101
